FAERS Safety Report 6693232-3 (Version None)
Quarter: 2010Q2

REPORT INFORMATION
  Report Type: 
  Country: None (occurrence: None)
  Receive Date: 20100421
  Receipt Date: 20100421
  Transmission Date: 20101027
  Serious: No
  Sender: FDA-Public Use
  Company Number: None

PATIENT
  Sex: Female
  Weight: 77.1115 kg

DRUGS (2)
  1. ADVAIR DISKUS 100/50 [Suspect]
     Indication: DYSGEUSIA
     Dosage: SINGULAIR 10 MERCK
     Dates: start: 20080310, end: 20080401
  2. PROAIR HFA [Suspect]
     Dosage: PREDNISONE OR BIOXIN ?
     Dates: start: 20080310, end: 20080401

REACTIONS (4)
  - DRUG INEFFECTIVE [None]
  - DYSGEUSIA [None]
  - ORAL CANDIDIASIS [None]
  - PAROSMIA [None]
